FAERS Safety Report 6378684-0 (Version None)
Quarter: 2009Q3

REPORT INFORMATION
  Report Type: 
  Country: None (occurrence: None)
  Receive Date: 20090928
  Receipt Date: 20090921
  Transmission Date: 20100115
  Serious: Yes (Hospitalization)
  Sender: FDA-Public Use
  Company Number: US-AMGEN-KDL362007

PATIENT
  Sex: Male
  Weight: 125 kg

DRUGS (13)
  1. ARANESP [Suspect]
     Indication: DIALYSIS
  2. VITAMIN B-12 [Concomitant]
  3. SIMVASTATIN [Concomitant]
  4. NIFEDIPINE [Concomitant]
  5. METOPROLOL [Concomitant]
  6. CLONAZEPAM [Concomitant]
  7. CITALOPRAM HYDROBROMIDE [Concomitant]
  8. OMEPRAZOLE [Concomitant]
  9. LACTOBACILLUS ACIDOPHILUS [Concomitant]
  10. CLONIDINE [Concomitant]
  11. INSULIN [Concomitant]
  12. ASPIRIN [Concomitant]
  13. MULTI-VITAMINS [Concomitant]

REACTIONS (3)
  - APLASIA PURE RED CELL [None]
  - PLATELET COUNT DECREASED [None]
  - RETICULOCYTE COUNT ABNORMAL [None]
